FAERS Safety Report 11334989 (Version 1)
Quarter: 2015Q3

REPORT INFORMATION
  Report Type: Spontaneous
  Country: US (occurrence: None)
  Receive Date: 20150731
  Receipt Date: 20150731
  Transmission Date: 20151125
  Serious: No
  Sender: FDA-Public Use
  Company Number: None

PATIENT
  Age: 82 Year
  Sex: Female
  Weight: 54.43 kg

DRUGS (8)
  1. VITAMIN C [Concomitant]
     Active Substance: ASCORBIC ACID
  2. COQ10 [Concomitant]
     Active Substance: UBIDECARENONE
  3. ALENDRONATE SODIUM. [Suspect]
     Active Substance: ALENDRONATE SODIUM
     Indication: BONE DISORDER
     Dosage: 1 TABLET
     Route: 048
     Dates: start: 20150429, end: 20150715
  4. PRAVASTATIN [Concomitant]
     Active Substance: PRAVASTATIN\PRAVASTATIN SODIUM
  5. METOPROLOL [Concomitant]
     Active Substance: METOPROLOL
  6. CALCIUM [Concomitant]
     Active Substance: CALCIUM
  7. MULTIVITAMINS [Concomitant]
     Active Substance: VITAMINS
  8. D3 [Concomitant]
     Active Substance: 25-HYDROXYCHOLECALCIFEROL, 5-TRANS-

REACTIONS (6)
  - Panic reaction [None]
  - Dizziness [None]
  - Heart rate decreased [None]
  - Anxiety [None]
  - Confusional state [None]
  - Asthenia [None]

NARRATIVE: CASE EVENT DATE: 20150429
